FAERS Safety Report 12521428 (Version 1)
Quarter: 2016Q3

REPORT INFORMATION
  Report Type: Spontaneous
  Country: CH (occurrence: CH)
  Receive Date: 20160701
  Receipt Date: 20160701
  Transmission Date: 20161109
  Serious: Yes (Other)
  Sender: FDA-Public Use
  Company Number: CH-009507513-1606CHE013764

PATIENT
  Sex: Male

DRUGS (3)
  1. TRIDERM [Suspect]
     Active Substance: TRIAMCINOLONE ACETONIDE
     Route: 061
  2. IMAVEROL [Suspect]
     Active Substance: ENILCONAZOLE
     Route: 061
  3. IMAZOL CREME [Suspect]
     Active Substance: CLOTRIMAZOLE\HEXAMIDINE DIISETHIONATE
     Indication: RASH PAPULAR
     Route: 061

REACTIONS (3)
  - Rash papular [Recovered/Resolved]
  - Rash [Unknown]
  - Drug ineffective [None]

NARRATIVE: CASE EVENT DATE: 2016
